FAERS Safety Report 9500165 (Version 1)
Quarter: 2013Q1

REPORT INFORMATION
  Report Type: Spontaneous
  Country: US (occurrence: None)
  Receive Date: 20130107
  Receipt Date: 20130107
  Transmission Date: 20140127
  Serious: No
  Sender: FDA-Public Use
  Company Number: PHEH2012US022814

PATIENT
  Age: 43 Year
  Sex: Female
  Weight: 53.1 kg

DRUGS (6)
  1. GILENYA (FINGOLIMOD) CAPSULE [Suspect]
     Indication: MULTIPLE SCLEROSIS
     Route: 048
     Dates: start: 20121116, end: 20121116
  2. SIRDALUD (TIZANIDINE HYDROCHLORIDE) [Concomitant]
  3. TRILEPTAL (OXCARBAZEPINE) [Concomitant]
  4. IMOVANE (ZOPICLONE) [Concomitant]
  5. SIODUTED (SIODUTED) [Concomitant]
  6. PARANECTAL (PARANECTAL) [Concomitant]

REACTIONS (7)
  - Blood pressure fluctuation [None]
  - Feeling abnormal [None]
  - Feeling cold [None]
  - Nervousness [None]
  - Fatigue [None]
  - Flushing [None]
  - Dizziness [None]
